FAERS Safety Report 7573154-6 (Version None)
Quarter: 2011Q2

REPORT INFORMATION
  Report Type: 
  Country: None (occurrence: None)
  Receive Date: 20110627
  Receipt Date: 20110622
  Transmission Date: 20111010
  Serious: Yes (Other)
  Sender: FDA-Public Use
  Company Number: CA-BRISTOL-MYERS SQUIBB COMPANY-15849458

PATIENT

DRUGS (2)
  1. TENOFOVIR DISOPROXIL FUMARATE [Interacting]
  2. BLENOXANE [Suspect]
     Dosage: 1-2 DOSES OF BLENOXANE

REACTIONS (2)
  - PULMONARY TOXICITY [None]
  - DRUG INTERACTION [None]
